FAERS Safety Report 11938579 (Version 3)
Quarter: 2016Q2

REPORT INFORMATION
  Report Type: Spontaneous
  Country: US (occurrence: US)
  Receive Date: 20160122
  Receipt Date: 20160414
  Transmission Date: 20160815
  Serious: Yes (Other)
  Sender: FDA-Public Use
  Company Number: US-BAYER-2016-011031

PATIENT
  Age: 65 Year
  Sex: Female

DRUGS (9)
  1. STIVARGA [Suspect]
     Active Substance: REGORAFENIB
     Indication: COLON CANCER
     Dosage: 160 MG, QD FOR 21 DAYS AND 7 DAYS OFF
     Route: 048
     Dates: start: 20160109, end: 20160117
  2. PROVENTIL [Concomitant]
     Active Substance: ALBUTEROL
  3. OXYCODONE [Concomitant]
     Active Substance: OXYCODONE
  4. STIVARGA [Suspect]
     Active Substance: REGORAFENIB
     Indication: COLON CANCER
     Dosage: 40 MG, BID FOR 21 DAYS AND 7 DAYS OFF
     Route: 048
     Dates: start: 201602
  5. PRILOSEC [Concomitant]
     Active Substance: OMEPRAZOLE MAGNESIUM
  6. XANAX [Concomitant]
     Active Substance: ALPRAZOLAM
  7. STIVARGA [Suspect]
     Active Substance: REGORAFENIB
     Indication: COLON CANCER
     Dosage: UNK
     Route: 048
     Dates: end: 20160203
  8. FENTANYL. [Concomitant]
     Active Substance: FENTANYL
  9. HYDROMORPHONE [Concomitant]
     Active Substance: HYDROMORPHONE
     Dosage: UNK

REACTIONS (17)
  - Plantar erythema [Not Recovered/Not Resolved]
  - Pain in extremity [Not Recovered/Not Resolved]
  - Palmar-plantar erythrodysaesthesia syndrome [Not Recovered/Not Resolved]
  - Gait disturbance [Not Recovered/Not Resolved]
  - Vomiting [Not Recovered/Not Resolved]
  - Feeding disorder [None]
  - Peripheral swelling [Not Recovered/Not Resolved]
  - Feeding disorder [None]
  - Diarrhoea [Not Recovered/Not Resolved]
  - Neuropathy peripheral [None]
  - Abdominal pain upper [None]
  - Dysgeusia [None]
  - Pain in extremity [None]
  - Nausea [Not Recovered/Not Resolved]
  - Asthenia [None]
  - Decreased appetite [None]
  - Palmar-plantar erythrodysaesthesia syndrome [Not Recovered/Not Resolved]

NARRATIVE: CASE EVENT DATE: 20160115
